FAERS Safety Report 17226922 (Version 2)
Quarter: 2020Q1

REPORT INFORMATION
  Report Type: Spontaneous
  Country: RU (occurrence: RU)
  Receive Date: 20200103
  Receipt Date: 20200204
  Transmission Date: 20200409
  Serious: Yes (Hospitalization, Other)
  Sender: FDA-Public Use
  Company Number: RU-ROCHE-2508637

PATIENT
  Sex: Male

DRUGS (1)
  1. OCREVUS [Suspect]
     Active Substance: OCRELIZUMAB
     Indication: MULTIPLE SCLEROSIS
     Route: 042
     Dates: start: 20190528, end: 20190601

REACTIONS (2)
  - White blood cell count abnormal [Unknown]
  - Acute promyelocytic leukaemia [Recovering/Resolving]

NARRATIVE: CASE EVENT DATE: 20191015
